FAERS Safety Report 7578674-6 (Version None)
Quarter: 2011Q2

REPORT INFORMATION
  Report Type: 
  Country: None (occurrence: None)
  Receive Date: 20110628
  Receipt Date: 20110628
  Transmission Date: 20111010
  Serious: Yes (Hospitalization)
  Sender: FDA-Public Use
  Company Number: PHHO2010DE14577

PATIENT
  Sex: Female
  Weight: 65 kg

DRUGS (1)
  1. GILENYA [Suspect]
     Indication: MULTIPLE SCLEROSIS
     Dosage: DOSE BLINDED
     Route: 048
     Dates: start: 20090522

REACTIONS (5)
  - HAEMORRHAGE [None]
  - BORDERLINE OVARIAN TUMOUR [None]
  - OVARIAN CYST [None]
  - OEDEMA [None]
  - CALCINOSIS [None]
